FAERS Safety Report 7363721-7 (Version None)
Quarter: 2011Q1

REPORT INFORMATION
  Report Type: 
  Country: None (occurrence: None)
  Receive Date: 20110321
  Receipt Date: 20110311
  Transmission Date: 20110831
  Serious: Yes (Hospitalization)
  Sender: FDA-Public Use
  Company Number: US-ASTRAZENECA-2010SE13999

PATIENT
  Age: 52 Year
  Sex: Female

DRUGS (3)
  1. METOPROLOL SUCCINATE [Suspect]
     Dosage: TOPROL XL 50 MG THREE TIMES A DAY
     Route: 048
  2. METOPROLOL SUCCINATE [Suspect]
     Dosage: TOPROL XL
     Route: 048
  3. METOPROLOL SUCCINATE [Suspect]
     Dosage: GENERIC METOPROLOL SUCCINATE, 50 MG THREE TIMES A DAY
     Route: 048
     Dates: start: 20090101

REACTIONS (7)
  - PRODUCT SUBSTITUTION ISSUE [None]
  - ADVERSE DRUG REACTION [None]
  - FEELING ABNORMAL [None]
  - DYSPNOEA [None]
  - DIZZINESS [None]
  - CHEST DISCOMFORT [None]
  - HYSTERECTOMY [None]
